FAERS Safety Report 5671693-6 (Version None)
Quarter: 2008Q2

REPORT INFORMATION
  Report Type: 
  Country: None (occurrence: None)
  Receive Date: 20080229
  Receipt Date: 20071128
  Transmission Date: 20081010
  Serious: No
  Sender: FDA-Public Use
  Company Number: PHEH2007US08278

PATIENT
  Age: 18 Year
  Sex: Female

DRUGS (1)
  1. EXJADE [Suspect]
     Indication: IRON OVERLOAD
     Dosage: 500 MG, QD, ORAL
     Route: 048
     Dates: start: 20060224

REACTIONS (10)
  - ABDOMINAL PAIN UPPER [None]
  - CHROMATURIA [None]
  - FAECES DISCOLOURED [None]
  - NAUSEA [None]
  - PAIN [None]
  - PYREXIA [None]
  - RASH [None]
  - RENAL CYST [None]
  - URINARY TRACT INFECTION [None]
  - URINE ODOUR ABNORMAL [None]
